FAERS Safety Report 6219510-X (Version None)
Quarter: 2009Q2

REPORT INFORMATION
  Report Type: 
  Country: None (occurrence: None)
  Receive Date: 20090609
  Receipt Date: 20090601
  Transmission Date: 20091009
  Serious: Yes (Hospitalization, Other)
  Sender: FDA-Public Use
  Company Number: US-JNJFOC-20090600826

PATIENT
  Sex: Female
  Weight: 108.86 kg

DRUGS (1)
  1. DURAGESIC-100 [Suspect]
     Indication: THROMBOPHLEBITIS
     Route: 062

REACTIONS (2)
  - BACTERIA BLOOD IDENTIFIED [None]
  - CARDIAC FAILURE CONGESTIVE [None]
